FAERS Safety Report 12712180 (Version 8)
Quarter: 2018Q4

REPORT INFORMATION
  Report Type: Spontaneous
  Country: NL (occurrence: NL)
  Receive Date: 20160902
  Receipt Date: 20181218
  Transmission Date: 20190204
  Serious: Yes (Other)
  Sender: FDA-Public Use
  Company Number: NL-TEVA-688873ISR

PATIENT
  Sex: Male

DRUGS (1)
  1. RISEDRONATE SODIUM UNK [Suspect]
     Active Substance: RISEDRONATE SODIUM
     Indication: OSTEOPOROSIS
     Dosage: 35 MG ONCE WEEKLY FOR 2 YEARS FOR ACUMULATIVE DOSE OF 3500MG
     Route: 048
     Dates: start: 2013, end: 2015

REACTIONS (7)
  - Tibia fracture [Recovered/Resolved]
  - Off label use [Unknown]
  - Pathological fracture [Recovered/Resolved]
  - Atypical femur fracture [Recovered/Resolved]
  - Fibula fracture [Recovered/Resolved]
  - Pain [Recovered/Resolved]
  - Fall [Recovered/Resolved]

NARRATIVE: CASE EVENT DATE: 2013
